FAERS Safety Report 5232921-4 (Version None)
Quarter: 2007Q1

REPORT INFORMATION
  Report Type: 
  Country: None (occurrence: None)
  Receive Date: 20070207
  Receipt Date: 20070126
  Transmission Date: 20070707
  Serious: Yes (Death, Life-Threatening)
  Sender: FDA-Public Use
  Company Number: CA-NOVOPROD-259327

PATIENT
  Age: 19 Year
  Sex: Male
  Weight: 70 kg

DRUGS (7)
  1. NIASTASE [Suspect]
     Indication: DISSEMINATED INTRAVASCULAR COAGULATION
     Dosage: 2.4 MG, SINGLE
     Route: 042
     Dates: start: 20061212
  2. VASOPRESSIN [Concomitant]
     Indication: SHOCK HAEMORRHAGIC
     Dosage: .24 U, QD
     Route: 042
     Dates: start: 20061212, end: 20061212
  3. ADRENALINE                         /00003901/ [Concomitant]
     Indication: SHOCK HAEMORRHAGIC
     Dosage: 8.64 MG, QD
     Route: 042
     Dates: start: 20061212, end: 20061212
  4. NOREPHEDRINE HYDROCHLORIDE [Concomitant]
     Indication: SHOCK HAEMORRHAGIC
     Dosage: 23.04 MG, QD
     Dates: start: 20061212, end: 20061212
  5. CIPROFLOXACIN HCL [Concomitant]
     Dosage: 800 MG, QD
     Route: 042
     Dates: start: 20061212, end: 20061212
  6. RANITIDINE [Concomitant]
     Dosage: 100 MG, QD
     Route: 042
  7. FLAGYL                             /00012501/ [Concomitant]
     Dosage: 1.5 G, QD
     Route: 042
     Dates: start: 20061212, end: 20061212

REACTIONS (1)
  - DRUG INEFFECTIVE [None]
